FAERS Safety Report 16675139 (Version 2)
Quarter: 2019Q3

REPORT INFORMATION
  Report Type: Spontaneous
  Country: US (occurrence: US)
  Receive Date: 20190806
  Receipt Date: 20190905
  Transmission Date: 20191004
  Serious: No
  Sender: FDA-Public Use
  Company Number: US-ELI_LILLY_AND_COMPANY-US201907010016

PATIENT
  Sex: Male

DRUGS (5)
  1. EMGALITY [Suspect]
     Active Substance: GALCANEZUMAB-GNLM
     Dosage: 120 MG
     Route: 058
     Dates: start: 20190801
  2. EMGALITY [Suspect]
     Active Substance: GALCANEZUMAB-GNLM
     Indication: CLUSTER HEADACHE
     Dosage: 120 MG
     Route: 058
     Dates: start: 20190716, end: 20190716
  3. SUMATRIPTAN. [Concomitant]
     Active Substance: SUMATRIPTAN
     Indication: CLUSTER HEADACHE
     Dosage: UNK, DAILY
     Route: 065
  4. EMGALITY [Suspect]
     Active Substance: GALCANEZUMAB-GNLM
     Dosage: 120 MG
     Route: 058
     Dates: start: 20190717, end: 20190717
  5. PREDNISONE. [Concomitant]
     Active Substance: PREDNISONE
     Indication: CLUSTER HEADACHE
     Dosage: 50 MG, UNKNOWN
     Route: 065

REACTIONS (6)
  - Underdose [Unknown]
  - Vomiting [Unknown]
  - Feeling abnormal [Unknown]
  - Gastric disorder [Unknown]
  - Self-injurious ideation [Unknown]
  - Inappropriate schedule of product administration [Unknown]
